FAERS Safety Report 9484806 (Version 1)
Quarter: 2013Q3

REPORT INFORMATION
  Report Type: Spontaneous
  Country: US (occurrence: US)
  Receive Date: 20130828
  Receipt Date: 20130828
  Transmission Date: 20140515
  Serious: Yes (Other)
  Sender: FDA-Public Use
  Company Number: US-AMGEN-USASP2011016574

PATIENT
  Sex: Female

DRUGS (1)
  1. ENBREL [Suspect]
     Indication: RHEUMATOID ARTHRITIS
     Dosage: 50 MG, QWK
     Route: 065
     Dates: start: 20030901, end: 20100306

REACTIONS (8)
  - Pulmonary fibrosis [Recovered/Resolved]
  - Gastrooesophageal reflux disease [Recovered/Resolved]
  - Arthropathy [Not Recovered/Not Resolved]
  - Abdominal discomfort [Not Recovered/Not Resolved]
  - Cough [Not Recovered/Not Resolved]
  - Localised infection [Not Recovered/Not Resolved]
  - Scar [Not Recovered/Not Resolved]
  - Pain [Unknown]
